FAERS Safety Report 8167355-6 (Version None)
Quarter: 2012Q1

REPORT INFORMATION
  Report Type: 
  Country: None (occurrence: None)
  Receive Date: 20120103
  Receipt Date: 20111102
  Transmission Date: 20120608
  Serious: No
  Sender: FDA-Public Use
  Company Number: AE-2011-002198

PATIENT
  Age: 56 Year
  Sex: Female
  Weight: 98.8842 kg

DRUGS (7)
  1. RIBAVIRIN [Concomitant]
  2. HYDROCODONE BITARTRATE [Concomitant]
  3. ZOLPIDEM [Concomitant]
  4. NEXIUM [Concomitant]
  5. INCIVEK [Suspect]
     Dosage: 2250 MG (750 MG, 1 IN 8 HR)
     Dates: start: 20110925
  6. VENLAFAXINE [Concomitant]
  7. PEGASYS [Concomitant]

REACTIONS (1)
  - DRUG DOSE OMISSION [None]
